FAERS Safety Report 9961175 (Version 1)
Quarter: 2014Q1

REPORT INFORMATION
  Report Type: Spontaneous
  Country: FR (occurrence: FR)
  Receive Date: 20140305
  Receipt Date: 20140305
  Transmission Date: 20141002
  Serious: Yes (Hospitalization)
  Sender: FDA-Public Use
  Company Number: FR-ROCHE-1357129

PATIENT
  Age: 82 Year
  Sex: Female

DRUGS (2)
  1. ROACTEMRA [Suspect]
     Indication: RHEUMATOID ARTHRITIS
     Dosage: LAST DOSE PRIOR TO SERIOUS ADVERSE EVENT WAS GIVEN ON19/DEC/2013 WHICH WAS 16TH INFUSION
     Route: 042
     Dates: start: 20121025
  2. ROACTEMRA [Suspect]
     Route: 042
     Dates: start: 20140116

REACTIONS (1)
  - Acute coronary syndrome [Recovered/Resolved with Sequelae]
